FAERS Safety Report 7691742-3 (Version None)
Quarter: 2011Q3

REPORT INFORMATION
  Report Type: 
  Country: None (occurrence: None)
  Receive Date: 20110818
  Receipt Date: 20110812
  Transmission Date: 20111222
  Serious: Yes (Hospitalization)
  Sender: FDA-Public Use
  Company Number: US-GLAXOSMITHKLINE-A0941395A

PATIENT
  Age: 73 Year
  Sex: Female
  Weight: 85 kg

DRUGS (7)
  1. VELCADE [Suspect]
     Indication: MULTIPLE MYELOMA
     Dosage: 2.4MG TWO TIMES PER WEEK
     Route: 042
     Dates: start: 20110418
  2. SIMVASTATIN [Concomitant]
  3. CYMBALTA [Concomitant]
  4. MELPHALAN HYDROCHLORIDE [Suspect]
     Indication: MULTIPLE MYELOMA
     Dosage: 16MG PER DAY
     Route: 048
     Dates: start: 20110418
  5. LISINOPRIL [Concomitant]
  6. PREDNISONE [Suspect]
     Indication: MULTIPLE MYELOMA
     Dosage: 100MG PER DAY
     Route: 048
     Dates: start: 20110418
  7. NORCO [Concomitant]

REACTIONS (4)
  - OEDEMA PERIPHERAL [None]
  - ARTHRALGIA [None]
  - FIBULA FRACTURE [None]
  - FALL [None]
